FAERS Safety Report 19179986 (Version 2)
Quarter: 2021Q2

REPORT INFORMATION
  Report Type: Report from Study
  Country: IN (occurrence: IN)
  Receive Date: 20210426
  Receipt Date: 20210505
  Transmission Date: 20210717
  Serious: Yes (Death, Hospitalization)
  Sender: FDA-Public Use
  Company Number: IN-MYLANLABS-2021M1014784

PATIENT
  Age: 64 Year
  Sex: Female

DRUGS (3)
  1. CARBOPLATIN. [Suspect]
     Active Substance: CARBOPLATIN
     Indication: OVARIAN CANCER RECURRENT
     Dosage: CYCLE 1 (210 MG, 1 IN 3 WK)
     Route: 042
     Dates: start: 20210111, end: 20210111
  2. ABEVMY [Suspect]
     Active Substance: BEVACIZUMAB
     Indication: OVARIAN CANCER RECURRENT
     Dosage: CYCLE 1?15MG/KG (1 IN 3 WK)
     Route: 042
     Dates: start: 20210111, end: 20210111
  3. PACLITAXEL. [Suspect]
     Active Substance: PACLITAXEL
     Indication: OVARIAN CANCER RECURRENT
     Dosage: CYCLE 1 (130MG, 1 IN 3 WK)
     Route: 042
     Dates: start: 20210111, end: 20210111

REACTIONS (3)
  - Septic shock [Fatal]
  - Pneumonia aspiration [Fatal]
  - Encephalopathy [Not Recovered/Not Resolved]

NARRATIVE: CASE EVENT DATE: 20210219
